FAERS Safety Report 5220547-8 (Version None)
Quarter: 2007Q1

REPORT INFORMATION
  Report Type: 
  Country: None (occurrence: None)
  Receive Date: 20070126
  Receipt Date: 20070116
  Transmission Date: 20070707
  Serious: Yes (Other)
  Sender: FDA-Public Use
  Company Number: PHEH2007US00963

PATIENT

DRUGS (1)
  1. SANDOSTATIN LAR [Suspect]
     Dates: start: 20060101, end: 20060701

REACTIONS (1)
  - NEUTROPHIL COUNT DECREASED [None]
